FAERS Safety Report 8734093 (Version 6)
Quarter: 2013Q1

REPORT INFORMATION
  Report Type: Spontaneous
  Country: US (occurrence: US)
  Receive Date: 20120821
  Receipt Date: 20130325
  Transmission Date: 20140127
  Serious: Yes (Other)
  Sender: FDA-Public Use
  Company Number: US-ASTRAZENECA-2012SE56889

PATIENT
  Age: 66 Year
  Sex: Female

DRUGS (3)
  1. NEXIUM [Suspect]
     Route: 048
  2. PRILOSEC [Suspect]
     Route: 048
  3. PRILOSEC [Suspect]
     Route: 048

REACTIONS (18)
  - Influenza [Unknown]
  - Gastric disorder [Unknown]
  - Breath odour [Unknown]
  - Rheumatoid arthritis [Unknown]
  - Pain in extremity [Unknown]
  - Pharyngeal disorder [Unknown]
  - Dyspepsia [Unknown]
  - Alopecia [Unknown]
  - Malaise [Unknown]
  - Flatulence [Unknown]
  - Abdominal pain upper [Unknown]
  - Eructation [Unknown]
  - Diarrhoea [Unknown]
  - Abdominal pain upper [Unknown]
  - Abdominal discomfort [Unknown]
  - Nausea [Unknown]
  - Intentional drug misuse [Unknown]
  - Drug dose omission [Unknown]
